FAERS Safety Report 26062731 (Version 1)
Quarter: 2025Q4

REPORT INFORMATION
  Report Type: Report from Study
  Country: BR (occurrence: BR)
  Receive Date: 20251119
  Receipt Date: 20251119
  Transmission Date: 20260118
  Serious: Yes (Other)
  Sender: EMD SERONO INC
  Company Number: BR-Merck Healthcare KGaA-2025058118

PATIENT
  Sex: Female

DRUGS (4)
  1. MAVENCLAD [Suspect]
     Active Substance: CLADRIBINE
     Indication: Multiple sclerosis
     Dosage: YEAR ONE MONTH TWO THERAPY: 2 TABLETS ON DAYS 1 TO 3 AND 1 TABLET ON DAYS 4 TO 5
  2. MAVENCLAD [Suspect]
     Active Substance: CLADRIBINE
     Dosage: YEAR TWO-MONTH ONE THERAPY: 2 TABLETS ON DAYS 1 TO 3 AND 1 TABLET ON DAYS 4 TO 5
  3. MAVENCLAD [Suspect]
     Active Substance: CLADRIBINE
     Dosage: YEAR TWO-MONTH TWO THERAPY: 2 TABLETS ON DAYS 1 TO 3 AND 1 TABLET ON DAYS 4 TO 5
     Dates: start: 20250105
  4. MAVENCLAD [Suspect]
     Active Substance: CLADRIBINE
     Dosage: YEAR ONE MONTH ONE THERAPY: 2 TABLETS ON DAYS 1 TO 3 AND 1 TABLET ON DAYS 4 TO 5
     Dates: start: 20231205

REACTIONS (1)
  - Nasal septum deviation [Unknown]
